FAERS Safety Report 4367772-6 (Version None)
Quarter: 2004Q2

REPORT INFORMATION
  Report Type: 
  Country: None (occurrence: None)
  Receive Date: 20040601
  Receipt Date: 20040518
  Transmission Date: 20050107
  Serious: Yes (Hospitalization)
  Sender: FDA-Public Use
  Company Number: AU-AMGEN-AUS077110

PATIENT
  Sex: Female
  Weight: 59 kg

DRUGS (6)
  1. NEULASTA [Suspect]
     Dates: start: 20040120
  2. SODIUM BICARBONATE [Concomitant]
  3. FLUCONAZOLE [Concomitant]
  4. MEDROXYPROGESTERONE [Concomitant]
  5. BACTRIM DS [Concomitant]
  6. ONDANSETRON [Concomitant]

REACTIONS (2)
  - URTICARIA [None]
  - VOMITING [None]
